FAERS Safety Report 7788487-8 (Version None)
Quarter: 2011Q3

REPORT INFORMATION
  Report Type: 
  Country: None (occurrence: None)
  Receive Date: 20110930
  Receipt Date: 20110920
  Transmission Date: 20111222
  Serious: Yes (Hospitalization)
  Sender: FDA-Public Use
  Company Number: FR-JNJFOC-20110808446

PATIENT
  Sex: Female
  Weight: 31 kg

DRUGS (1)
  1. HALDOL [Suspect]
     Indication: ABNORMAL BEHAVIOUR
     Dosage: 0.5MG ON THE MORNING, 1MG ON THE EVENING
     Route: 048
     Dates: start: 20110802, end: 20110804

REACTIONS (7)
  - DYSPNOEA [None]
  - TACHYCARDIA [None]
  - ANXIETY [None]
  - PYREXIA [None]
  - EXTRAPYRAMIDAL DISORDER [None]
  - VISUAL IMPAIRMENT [None]
  - MALAISE [None]
